FAERS Safety Report 15430567 (Version 2)
Quarter: 2019Q4

REPORT INFORMATION
  Report Type: Spontaneous
  Country: US (occurrence: US)
  Receive Date: 20180926
  Receipt Date: 20191202
  Transmission Date: 20200122
  Serious: Yes (Hospitalization)
  Sender: FDA-Public Use
  Company Number: US-LUNDBECK-DKLU2054775

PATIENT
  Age: 58 Year
  Sex: Male

DRUGS (6)
  1. NORTHERA [Interacting]
     Active Substance: DROXIDOPA
     Route: 048
     Dates: end: 20191018
  2. NORTHERA [Interacting]
     Active Substance: DROXIDOPA
     Dosage: OVERDOSE: 2100MG NORTHERA
     Route: 048
     Dates: start: 2019
  3. NORTHERA [Suspect]
     Active Substance: DROXIDOPA
     Indication: ORTHOSTATIC HYPOTENSION
     Dosage: TITRATION COMPLETE
     Route: 048
     Dates: start: 2017
  4. LYRICA [Interacting]
     Active Substance: PREGABALIN
     Indication: PAIN
     Route: 065
  5. AIMOVIG [Interacting]
     Active Substance: ERENUMAB-AOOE
     Indication: HEADACHE
     Route: 065
  6. CYMBALTA [Interacting]
     Active Substance: DULOXETINE HYDROCHLORIDE
     Indication: NEUROPATHY PERIPHERAL
     Route: 065

REACTIONS (11)
  - Cerebrovascular accident [Unknown]
  - Prescribed overdose [Unknown]
  - Headache [Unknown]
  - Palpitations [Unknown]
  - Somnolence [Unknown]
  - Insomnia [Unknown]
  - Tremor [Unknown]
  - Coronary arterial stent insertion [Unknown]
  - Pain [Unknown]
  - Blood pressure increased [Unknown]
  - Drug interaction [Unknown]

NARRATIVE: CASE EVENT DATE: 20180919
